FAERS Safety Report 9051033 (Version 1)
Quarter: 2013Q1

REPORT INFORMATION
  Report Type: Other
  Country: ES (occurrence: ES)
  Receive Date: 20130205
  Receipt Date: 20130205
  Transmission Date: 20140127
  Serious: Yes (Other)
  Sender: FDA-Public Use
  Company Number: ES-MPIJNJ-2013-00729

PATIENT
  Sex: 0

DRUGS (6)
  1. VELCADE [Suspect]
     Indication: PLASMA CELL MYELOMA
     Dosage: 1.92 MG, UNK
     Route: 042
     Dates: start: 20120518, end: 20120518
  2. PARACETAMOL [Concomitant]
     Indication: PAIN
     Dosage: UNK
     Dates: start: 20120509, end: 20120518
  3. ENALAPRIL [Concomitant]
     Dosage: 10 MG, UNK
     Route: 048
     Dates: start: 20120509
  4. PANTOPRAZOLE [Concomitant]
     Indication: PROPHYLAXIS
     Dosage: 40 MG, UNK
     Route: 048
     Dates: start: 20120509, end: 20120518
  5. NIFEDIPINE [Concomitant]
     Indication: HYPERTENSION
     Dosage: 120 MG, UNK
     Route: 048
     Dates: start: 20120515, end: 20120517
  6. IRBESARTAN [Concomitant]
     Indication: HYPERTENSION
     Dosage: 300 MG, UNK
     Route: 048
     Dates: start: 20120509, end: 20120517

REACTIONS (4)
  - Anaemia [Recovered/Resolved]
  - Hepatitis [Recovered/Resolved]
  - Retroperitoneal haematoma [Recovered/Resolved]
  - Faeces discoloured [Recovered/Resolved]
